FAERS Safety Report 6399574-3 (Version None)
Quarter: 2009Q4

REPORT INFORMATION
  Report Type: 
  Country: None (occurrence: None)
  Receive Date: 20091014
  Receipt Date: 20091005
  Transmission Date: 20100525
  Serious: Yes (Other)
  Sender: FDA-Public Use
  Company Number: US-JNJFOC-20080100963

PATIENT
  Sex: Female
  Weight: 43 kg

DRUGS (37)
  1. PLACEBO [Suspect]
     Route: 042
  2. PLACEBO [Suspect]
     Route: 042
  3. PLACEBO [Suspect]
     Indication: RHEUMATOID ARTHRITIS
     Route: 042
  4. METHOTREXATE [Suspect]
     Route: 048
  5. METHOTREXATE [Suspect]
     Route: 048
  6. METHOTREXATE [Suspect]
     Route: 048
  7. METHOTREXATE [Suspect]
     Route: 048
  8. METHOTREXATE [Suspect]
     Route: 048
  9. METHOTREXATE [Suspect]
     Route: 048
  10. METHOTREXATE [Suspect]
     Route: 048
  11. METHOTREXATE [Suspect]
     Route: 048
  12. METHOTREXATE [Suspect]
     Route: 048
  13. METHOTREXATE [Suspect]
     Route: 048
  14. METHOTREXATE [Suspect]
     Route: 048
  15. METHOTREXATE [Suspect]
     Route: 048
  16. METHOTREXATE [Suspect]
     Route: 048
  17. METHOTREXATE [Suspect]
     Route: 048
  18. METHOTREXATE [Suspect]
     Route: 048
  19. METHOTREXATE [Suspect]
     Route: 048
  20. METHOTREXATE [Suspect]
     Route: 048
  21. METHOTREXATE [Suspect]
     Route: 048
  22. METHOTREXATE [Suspect]
     Route: 048
  23. METHOTREXATE [Suspect]
     Route: 048
  24. METHOTREXATE [Suspect]
     Route: 048
  25. METHOTREXATE [Suspect]
     Route: 048
  26. METHOTREXATE [Suspect]
     Route: 048
  27. METHOTREXATE [Suspect]
     Route: 048
  28. METHOTREXATE [Suspect]
     Route: 048
  29. METHOTREXATE [Suspect]
     Indication: RHEUMATOID ARTHRITIS
     Route: 048
  30. FOLIC ACID [Concomitant]
     Indication: PROPHYLAXIS
     Route: 048
  31. ISONIAZID [Concomitant]
     Route: 048
  32. ISONIAZID [Concomitant]
     Route: 048
  33. ISONIAZID [Concomitant]
     Indication: PROPHYLAXIS
     Route: 048
  34. NAPROXEN [Concomitant]
     Route: 048
  35. NAPROXEN [Concomitant]
     Indication: RHEUMATOID ARTHRITIS
     Route: 048
  36. OMEPRAZOLE [Concomitant]
     Indication: PROPHYLAXIS
     Route: 048
  37. PREDNISOLONA [Concomitant]
     Indication: RHEUMATOID ARTHRITIS
     Route: 048

REACTIONS (1)
  - BASAL CELL CARCINOMA [None]
